FAERS Safety Report 6533745-8 (Version None)
Quarter: 2010Q1

REPORT INFORMATION
  Report Type: 
  Country: None (occurrence: None)
  Receive Date: 20100111
  Receipt Date: 20090310
  Transmission Date: 20100710
  Serious: No
  Sender: FDA-Public Use
  Company Number: US-ABBOTT-09P-163-0562014-00

PATIENT
  Sex: Female

DRUGS (2)
  1. VICODIN [Suspect]
     Indication: PAIN MANAGEMENT
     Dates: start: 20081028, end: 20081101
  2. FENTANYL-100 [Suspect]
     Indication: PAIN MANAGEMENT

REACTIONS (1)
  - DRUG INEFFECTIVE [None]
